FAERS Safety Report 6819633-8 (Version None)
Quarter: 2010Q3

REPORT INFORMATION
  Report Type: 
  Country: None (occurrence: None)
  Receive Date: 20100701
  Receipt Date: 20100422
  Transmission Date: 20110219
  Serious: No
  Sender: FDA-Public Use
  Company Number: US-TEVA-231806USA

PATIENT

DRUGS (1)
  1. AZILECT [Suspect]

REACTIONS (1)
  - GASTROENTERITIS VIRAL [None]
